FAERS Safety Report 7056252-5 (Version None)
Quarter: 2010Q4

REPORT INFORMATION
  Report Type: 
  Country: None (occurrence: None)
  Receive Date: 20101021
  Receipt Date: 20101008
  Transmission Date: 20110411
  Serious: Yes (Death, Congenital Anomaly, Other)
  Sender: FDA-Public Use
  Company Number: NL-ELI_LILLY_AND_COMPANY-NL201008008466

PATIENT
  Sex: Female

DRUGS (3)
  1. PROZAC [Suspect]
     Route: 064
  2. GRAVITAMON [Concomitant]
     Indication: VITAMIN SUPPLEMENTATION
     Route: 064
  3. OXAZEPAM [Concomitant]
     Route: 064

REACTIONS (3)
  - CLEFT PALATE [None]
  - DRUG EXPOSURE DURING PREGNANCY [None]
  - STILLBIRTH [None]
